FAERS Safety Report 13109302 (Version 1)
Quarter: 2017Q1

REPORT INFORMATION
  Report Type: Spontaneous
  Country: FR (occurrence: FR)
  Receive Date: 20170112
  Receipt Date: 20170112
  Transmission Date: 20170428
  Serious: Yes (Hospitalization, Other)
  Sender: FDA-Public Use
  Company Number: FR-BRISTOL-MYERS SQUIBB COMPANY-BMS-2017-001061

PATIENT
  Age: 5 Year
  Sex: Male

DRUGS (4)
  1. OPDIVO [Suspect]
     Active Substance: NIVOLUMAB
     Indication: METASTATIC MALIGNANT MELANOMA
     Dosage: 60 MG, QCYCLE
     Route: 042
     Dates: start: 20161028, end: 20161111
  2. ENDOXAN                            /00021101/ [Suspect]
     Active Substance: CYCLOPHOSPHAMIDE
     Indication: METASTATIC MALIGNANT MELANOMA
     Dosage: 20 MG, QCYCLE
     Route: 065
  3. AMIKACIN [Suspect]
     Active Substance: AMIKACIN
     Indication: PYREXIA
     Dosage: 300 MG, QD
     Route: 042
     Dates: start: 20161119, end: 20161120
  4. VANCOMYCINE MYLAN                  /00314401/ [Suspect]
     Active Substance: VANCOMYCIN
     Indication: PYREXIA
     Dosage: 800 MG, QD
     Route: 042
     Dates: start: 20161119, end: 20161121

REACTIONS (3)
  - Acute kidney injury [Recovered/Resolved]
  - Pyrexia [Unknown]
  - Malignant neoplasm progression [Unknown]

NARRATIVE: CASE EVENT DATE: 20161120
